FAERS Safety Report 8529884-2 (Version None)
Quarter: 2012Q3

REPORT INFORMATION
  Report Type: 
  Country: None (occurrence: None)
  Receive Date: 20120710
  Receipt Date: 20120625
  Transmission Date: 20120928
  Serious: Yes (Life-Threatening, Hospitalization, Other)
  Sender: FDA-Public Use
  Company Number: GER/UKI/11/0021509

PATIENT
  Age: 22 Year
  Sex: Female

DRUGS (1)
  1. AMLODIPINE [Suspect]
     Indication: PRODUCT USED FOR UNKNOWN INDICATION
     Dosage: 280 MG, ORAL
     Route: 048

REACTIONS (8)
  - TOXICITY TO VARIOUS AGENTS [None]
  - HYPOTENSION [None]
  - HYPOCALCAEMIA [None]
  - OVERDOSE [None]
  - PLEURAL EFFUSION [None]
  - NON-CARDIOGENIC PULMONARY OEDEMA [None]
  - CARDIAC FAILURE CONGESTIVE [None]
  - TROPONIN INCREASED [None]
